FAERS Safety Report 6247591-6 (Version None)
Quarter: 2009Q2

REPORT INFORMATION
  Report Type: 
  Country: None (occurrence: None)
  Receive Date: 20090626
  Receipt Date: 20090618
  Transmission Date: 20091009
  Serious: Yes (Other)
  Sender: FDA-Public Use
  Company Number: US-MERCK-0906USA03757

PATIENT
  Sex: Male

DRUGS (6)
  1. ZOCOR [Suspect]
     Indication: BLOOD CHOLESTEROL
     Route: 048
     Dates: start: 20090101
  2. ZOCOR [Suspect]
     Route: 048
     Dates: end: 20090101
  3. LISINOPRIL [Concomitant]
     Route: 048
  4. METOPROLOL [Concomitant]
     Route: 065
  5. PLAVIX [Concomitant]
     Route: 065
  6. TERAZOSIN HYDROCHLORIDE [Concomitant]
     Route: 065

REACTIONS (2)
  - CARDIAC DISORDER [None]
  - CONSTIPATION [None]
